FAERS Safety Report 18643445 (Version 1)
Quarter: 2020Q4

REPORT INFORMATION
  Report Type: Spontaneous
  Country: IT (occurrence: IT)
  Receive Date: 20201221
  Receipt Date: 20201221
  Transmission Date: 20210114
  Serious: Yes (Life-Threatening, Other)
  Sender: FDA-Public Use
  Company Number: IT-PFIZER INC-2020501649

PATIENT
  Age: 72 Year
  Sex: Male

DRUGS (4)
  1. ECALTA [Suspect]
     Active Substance: ANIDULAFUNGIN
     Indication: FUNGAL INFECTION
     Dosage: 200 UG, AS NEEDED
     Route: 042
     Dates: start: 20201210, end: 20201210
  2. LINEZOLID MYLAN PHARMA [Concomitant]
     Dates: start: 20201204
  3. MERREM [Concomitant]
     Active Substance: MEROPENEM
     Dosage: 2000 MG
     Dates: start: 20201208
  4. DIFLUCAN [Concomitant]
     Active Substance: FLUCONAZOLE
     Dosage: UNK
     Dates: start: 20201208, end: 20201209

REACTIONS (6)
  - Hypoxia [Recovered/Resolved]
  - Cyanosis [Recovered/Resolved]
  - Tachycardia [Recovered/Resolved]
  - Bronchospasm [Recovered/Resolved]
  - Oxygen saturation decreased [Recovered/Resolved]
  - Hypertension [Recovered/Resolved]

NARRATIVE: CASE EVENT DATE: 20201210
